FAERS Safety Report 4408635-7 (Version None)
Quarter: 2004Q3

REPORT INFORMATION
  Report Type: 
  Country: None (occurrence: None)
  Receive Date: 20040723
  Receipt Date: 20040708
  Transmission Date: 20050211
  Serious: Yes (Other)
  Sender: FDA-Public Use
  Company Number: 8006202

PATIENT
  Age: 39 Year
  Sex: Female

DRUGS (1)
  1. KEPPRA [Suspect]
     Indication: EPILEPSY
     Dosage: 1000 MG
     Dates: start: 20010101

REACTIONS (11)
  - DIPLOPIA [None]
  - DIZZINESS [None]
  - FEELING COLD [None]
  - HEADACHE [None]
  - INTRACRANIAL ANEURYSM [None]
  - MUSCULOSKELETAL STIFFNESS [None]
  - PHOTOSENSITIVITY REACTION [None]
  - REFUSAL OF TREATMENT BY PATIENT [None]
  - SUBARACHNOID HAEMORRHAGE [None]
  - TRANSIENT ISCHAEMIC ATTACK [None]
  - VOMITING [None]
